FAERS Safety Report 14183034 (Version 1)
Quarter: 2017Q4

REPORT INFORMATION
  Report Type: Report from Study
  Country: BR (occurrence: BR)
  Receive Date: 20171113
  Receipt Date: 20171113
  Transmission Date: 20180321
  Serious: Yes (Death)
  Sender: FDA-Public Use
  Company Number: PHHY2017BR167223

PATIENT
  Sex: Female
  Weight: 50 kg

DRUGS (1)
  1. DIOVAN HCT [Suspect]
     Active Substance: HYDROCHLOROTHIAZIDE\VALSARTAN
     Indication: CARDIOMEGALY
     Dosage: (HYDROCHLOROTHIAZIDE 12 MG, VALSARTAN 160 MG), QD
     Route: 065
     Dates: end: 20171027

REACTIONS (3)
  - Product use in unapproved indication [Recovered/Resolved]
  - Lung infection [Fatal]
  - Weight decreased [Unknown]
